FAERS Safety Report 19457483 (Version 16)
Quarter: 2024Q2

REPORT INFORMATION
  Report Type: Report from Study
  Country: BR (occurrence: BR)
  Receive Date: 20210624
  Receipt Date: 20240626
  Transmission Date: 20240715
  Serious: Yes (Other)
  Sender: FDA-Public Use
  Company Number: NVSC2021BR135637

PATIENT
  Age: 71 Year
  Sex: Female

DRUGS (12)
  1. KISQALI [Suspect]
     Active Substance: RIBOCICLIB
     Indication: Breast cancer
     Dosage: 3 DF
     Route: 065
     Dates: start: 20210419
  2. KISQALI [Suspect]
     Active Substance: RIBOCICLIB
     Indication: Invasive breast carcinoma
     Dosage: UNK
     Route: 065
     Dates: start: 20210425
  3. KISQALI [Suspect]
     Active Substance: RIBOCICLIB
     Dosage: 2 DF (START DATE: LAST WEEK)
     Route: 065
  4. KISQALI [Suspect]
     Active Substance: RIBOCICLIB
     Dosage: 3 DOSAGE FORM, QD (3 PILLS)
     Route: 065
     Dates: start: 202104
  5. KISQALI [Suspect]
     Active Substance: RIBOCICLIB
     Dosage: 400 MG, QD (FOR 21 DAYS)
     Route: 048
     Dates: start: 202104
  6. KISQALI [Suspect]
     Active Substance: RIBOCICLIB
     Dosage: UNK
     Route: 065
  7. KISQALI [Suspect]
     Active Substance: RIBOCICLIB
     Dosage: 200 MG
     Route: 065
  8. KISQALI [Suspect]
     Active Substance: RIBOCICLIB
     Dosage: UNK
     Route: 065
  9. FEMARA [Suspect]
     Active Substance: LETROZOLE
     Indication: Breast cancer
     Dosage: 1 DF
     Route: 065
     Dates: start: 20210419
  10. FEMARA [Suspect]
     Active Substance: LETROZOLE
     Dosage: 1 DOSAGE FORM, QD (1 PILL)
     Route: 065
  11. FEMARA [Suspect]
     Active Substance: LETROZOLE
     Dosage: 2.5 MG, QD
     Route: 048
     Dates: start: 202104
  12. OMEPRAZOLE [Concomitant]
     Active Substance: DONEPEZIL HYDROCHLORIDE\OMEPRAZOLE\OMEPRAZOLE MAGNESIUM
     Indication: Gastrointestinal disorder
     Dosage: UNK
     Route: 065

REACTIONS (49)
  - Immunodeficiency [Not Recovered/Not Resolved]
  - Haematochezia [Recovered/Resolved]
  - Breast cancer [Recovering/Resolving]
  - Metastasis [Unknown]
  - Metastases to bone [Unknown]
  - Neutropenia [Unknown]
  - Diarrhoea [Recovered/Resolved]
  - Motion sickness [Unknown]
  - Wound [Recovered/Resolved]
  - Hypersensitivity [Not Recovered/Not Resolved]
  - Skin exfoliation [Not Recovered/Not Resolved]
  - Skin disorder [Not Recovered/Not Resolved]
  - Full blood count abnormal [Unknown]
  - Neutrophil count decreased [Unknown]
  - Constipation [Not Recovered/Not Resolved]
  - Nausea [Recovering/Resolving]
  - Abdominal discomfort [Unknown]
  - Salivary hypersecretion [Unknown]
  - Malaise [Unknown]
  - Multi-organ disorder [Unknown]
  - Movement disorder [Recovering/Resolving]
  - Dysuria [Recovered/Resolved]
  - Bone pain [Unknown]
  - COVID-19 [Recovered/Resolved with Sequelae]
  - COVID-19 [Recovered/Resolved with Sequelae]
  - Discouragement [Recovered/Resolved]
  - Stress [Recovered/Resolved]
  - Balance disorder [Unknown]
  - Irritability [Recovered/Resolved]
  - Hypoacusis [Not Recovered/Not Resolved]
  - Fatigue [Not Recovered/Not Resolved]
  - Pruritus [Unknown]
  - Platelet count decreased [Unknown]
  - Vomiting [Unknown]
  - Nausea [Recovered/Resolved]
  - Dysuria [Recovering/Resolving]
  - Cystitis [Unknown]
  - Blood pressure abnormal [Unknown]
  - Musculoskeletal chest pain [Recovering/Resolving]
  - Limb discomfort [Unknown]
  - Tremor [Unknown]
  - Abdominal pain [Recovered/Resolved]
  - Tinnitus [Not Recovered/Not Resolved]
  - Asthenia [Not Recovered/Not Resolved]
  - Back pain [Recovering/Resolving]
  - Somnolence [Unknown]
  - Nausea [Unknown]
  - Anxiety [Unknown]
  - Irritability [Unknown]

NARRATIVE: CASE EVENT DATE: 20210401
